FAERS Safety Report 15251186 (Version 1)
Quarter: 2018Q3

REPORT INFORMATION
  Report Type: Spontaneous
  Country: US (occurrence: US)
  Receive Date: 20180807
  Receipt Date: 20180807
  Transmission Date: 20181010
  Serious: Yes (Death, Other)
  Sender: FDA-Public Use
  Company Number: US-SA-2018SA144398

PATIENT
  Age: 67 Year
  Sex: Female
  Weight: 75 kg

DRUGS (2)
  1. FOLIC ACID. [Concomitant]
     Active Substance: FOLIC ACID
     Dosage: 1 MG, QD
     Dates: start: 20180323, end: 20180402
  2. ENOXAPARIN SODIUM ? WINTHROP [Suspect]
     Active Substance: ENOXAPARIN SODIUM
     Indication: LUNG NEOPLASM MALIGNANT
     Dosage: 60 MG, BID
     Route: 065
     Dates: start: 20180329, end: 20180402

REACTIONS (1)
  - Cerebrovascular accident [Fatal]

NARRATIVE: CASE EVENT DATE: 20180402
